FAERS Safety Report 14392387 (Version 2)
Quarter: 2018Q2

REPORT INFORMATION
  Report Type: Report from Study
  Country: FR (occurrence: FR)
  Receive Date: 20180116
  Receipt Date: 20180406
  Transmission Date: 20180711
  Serious: No
  Sender: FDA-Public Use
  Company Number: FR-BIOVERATIV-2018BV000007

PATIENT
  Age: 52 Year
  Weight: 68 kg

DRUGS (1)
  1. ELOCTA [Suspect]
     Active Substance: EFMOROCTOCOG ALFA
     Indication: FACTOR VIII DEFICIENCY
     Dosage: ELOCTA RECEIVED FOR ONE MONTH
     Route: 065
     Dates: start: 201701

REACTIONS (1)
  - Drug ineffective [Unknown]
